FAERS Safety Report 7590175-8 (Version None)
Quarter: 2011Q3

REPORT INFORMATION
  Report Type: 
  Country: None (occurrence: None)
  Receive Date: 20110705
  Receipt Date: 20110621
  Transmission Date: 20111222
  Serious: Yes (Death)
  Sender: FDA-Public Use
  Company Number: US-WATSON-2011-09118

PATIENT
  Sex: Male

DRUGS (1)
  1. FENTANYL-100 [Suspect]
     Indication: PRODUCT USED FOR UNKNOWN INDICATION
     Dosage: 2 PATCHES USED AT A TIME EQUAL TO A 200 MCG DOSAGE
     Route: 062

REACTIONS (6)
  - CARDIAC ARREST [None]
  - OVERDOSE [None]
  - HYPOXIC-ISCHAEMIC ENCEPHALOPATHY [None]
  - RESPIRATORY FAILURE [None]
  - CORONARY ARTERY DISEASE [None]
  - LUNG DISORDER [None]
